FAERS Safety Report 20542230 (Version 4)
Quarter: 2022Q3

REPORT INFORMATION
  Report Type: Spontaneous
  Country: CA (occurrence: CA)
  Receive Date: 20220302
  Receipt Date: 20220829
  Transmission Date: 20221026
  Serious: Yes (Other)
  Sender: FDA-Public Use
  Company Number: CA-PFIZER INC-202200305305

PATIENT
  Age: 74 Year
  Sex: Female

DRUGS (7)
  1. RUXIENCE [Suspect]
     Active Substance: RITUXIMAB-PVVR
     Indication: Rheumatoid arthritis
     Dosage: 1000 MG, DAY 1 AND 15
     Route: 042
     Dates: start: 20210128, end: 20210211
  2. RUXIENCE [Suspect]
     Active Substance: RITUXIMAB-PVVR
     Dosage: 1000 MG,  DAY 1 AND 15
     Route: 042
     Dates: start: 20210211
  3. RUXIENCE [Suspect]
     Active Substance: RITUXIMAB-PVVR
     Dosage: 1000 MG, DAY 1 AND 15
     Route: 042
     Dates: start: 20210819, end: 20210902
  4. RUXIENCE [Suspect]
     Active Substance: RITUXIMAB-PVVR
     Dosage: 1000 MG,  DAY 1 AND 15
     Route: 042
     Dates: start: 20210902
  5. RUXIENCE [Suspect]
     Active Substance: RITUXIMAB-PVVR
     Dosage: 1000 MG, FOR ONE DOSE
     Route: 042
     Dates: start: 20220420, end: 20220420
  6. ADALAT [Concomitant]
     Active Substance: NIFEDIPINE
     Dosage: 1 DF, UNKNOWN DOSE
     Route: 065
  7. ATENOLOL [Concomitant]
     Active Substance: ATENOLOL
     Dosage: 1 DF, UNKNOWN DOSE
     Route: 065

REACTIONS (2)
  - Eye disorder [Recovered/Resolved]
  - Off label use [Unknown]

NARRATIVE: CASE EVENT DATE: 20220311
